FAERS Safety Report 5822575-8 (Version None)
Quarter: 2008Q3

REPORT INFORMATION
  Report Type: 
  Country: None (occurrence: None)
  Receive Date: 20080721
  Receipt Date: 20080703
  Transmission Date: 20090109
  Serious: Yes (Other)
  Sender: FDA-Public Use
  Company Number: 19739

PATIENT
  Age: 68 Year
  Sex: Female
  Weight: 67 kg

DRUGS (1)
  1. PACLITAXEL [Suspect]
     Dosage: 6 MG/ML IV
     Route: 042
     Dates: start: 20080530

REACTIONS (5)
  - CARDIO-RESPIRATORY ARREST [None]
  - FEELING HOT [None]
  - HYPERHIDROSIS [None]
  - PALLOR [None]
  - PRESYNCOPE [None]
